FAERS Safety Report 10206803 (Version 1)
Quarter: 2014Q2

REPORT INFORMATION
  Report Type: Spontaneous
  Country: US (occurrence: None)
  Receive Date: 20140528
  Receipt Date: 20140528
  Transmission Date: 20141212
  Serious: Yes (Life-Threatening, Other)
  Sender: FDA-Public Use
  Company Number: None

PATIENT
  Age: 22 Year
  Sex: Female

DRUGS (1)
  1. CARVEDILOL 3.125 MG [Suspect]
     Indication: HEART RATE INCREASED
     Dosage: 1 TABLET, TWICE DAILY, TAKEN BY MOUTH
     Route: 048
     Dates: start: 20140517, end: 20140522

REACTIONS (8)
  - Product substitution issue [None]
  - Chest discomfort [None]
  - Chest pain [None]
  - Dyspnoea [None]
  - Paraesthesia [None]
  - Paraesthesia [None]
  - Tongue disorder [None]
  - Bradycardia [None]
